FAERS Safety Report 8869891 (Version 2)
Quarter: 2013Q2

REPORT INFORMATION
  Report Type: Spontaneous
  Country: US (occurrence: None)
  Receive Date: 20121024
  Receipt Date: 20130403
  Transmission Date: 20140414
  Serious: Yes (Death, Hospitalization)
  Sender: FDA-Public Use
  Company Number: INT_00134_2012

PATIENT
  Age: 65 Year
  Sex: Female

DRUGS (3)
  1. CEFTRIAXONE [Suspect]
     Indication: URINARY TRACT INFECTION
     Dosage: (DF)
     Route: 042
  2. VANCOMYCIN [Concomitant]
  3. PIPERACILLIN/ TAZOBACTAM [Concomitant]

REACTIONS (3)
  - Anti-platelet antibody positive [None]
  - Thrombocytopenia [None]
  - General physical health deterioration [None]
